FAERS Safety Report 7582547-2 (Version None)
Quarter: 2011Q2

REPORT INFORMATION
  Report Type: 
  Country: None (occurrence: None)
  Receive Date: 20110630
  Receipt Date: 20110627
  Transmission Date: 20111010
  Serious: No
  Sender: FDA-Public Use
  Company Number: US-PFIZER INC-2011144012

PATIENT
  Sex: Male

DRUGS (1)
  1. ADVIL PM [Suspect]
     Dosage: UNK
     Route: 065

REACTIONS (3)
  - INSOMNIA [None]
  - METABOLIC DISORDER [None]
  - DISCOMFORT [None]
